FAERS Safety Report 14611328 (Version 7)
Quarter: 2018Q3

REPORT INFORMATION
  Report Type: Report from Study
  Country: CA (occurrence: CA)
  Receive Date: 20180308
  Receipt Date: 20180921
  Transmission Date: 20181010
  Serious: Yes (Other)
  Sender: FDA-Public Use
  Company Number: CA-ROCHE-2086065

PATIENT
  Age: 44 Year
  Sex: Female

DRUGS (7)
  1. METHYLPREDNISOLONE. [Concomitant]
     Active Substance: METHYLPREDNISOLONE
     Indication: PREMEDICATION
     Route: 042
     Dates: start: 20171113
  2. ACETAMINOPHEN. [Concomitant]
     Active Substance: ACETAMINOPHEN
     Indication: PREMEDICATION
     Route: 048
     Dates: start: 20171113
  3. RITUXAN [Suspect]
     Active Substance: RITUXIMAB
     Dosage: INFUSION NUMBER 9
     Route: 042
     Dates: start: 20180430
  4. TAMOXIFEN [Suspect]
     Active Substance: TAMOXIFEN
     Indication: PRODUCT USED FOR UNKNOWN INDICATION
     Route: 065
  5. RITUXAN [Suspect]
     Active Substance: RITUXIMAB
     Indication: BREAST CANCER
     Route: 042
     Dates: start: 20171113
  6. DIPHENHYDRAMINE. [Concomitant]
     Active Substance: DIPHENHYDRAMINE
     Indication: PREMEDICATION
     Route: 048
     Dates: start: 20171113
  7. DALTEPARIN [Concomitant]
     Active Substance: DALTEPARIN

REACTIONS (7)
  - Hypersomnia [Unknown]
  - Heart rate increased [Unknown]
  - Blood pressure diastolic abnormal [Unknown]
  - Depression [Recovering/Resolving]
  - Fluid retention [Recovering/Resolving]
  - Food craving [Recovering/Resolving]
  - Weight increased [Unknown]

NARRATIVE: CASE EVENT DATE: 20180820
